FAERS Safety Report 10022313 (Version 11)
Quarter: 2015Q3

REPORT INFORMATION
  Report Type: Spontaneous
  Country: US (occurrence: US)
  Receive Date: 20140319
  Receipt Date: 20150923
  Transmission Date: 20151125
  Serious: Yes (Hospitalization, Disabling, Other)
  Sender: FDA-Public Use
  Company Number: US-SANOFI-AVENTIS-2012SA041897

PATIENT
  Age: 56 Year
  Sex: Male
  Weight: 66.67 kg

DRUGS (32)
  1. METOPROLOL [Concomitant]
     Active Substance: METOPROLOL
     Indication: PANIC DISORDER
     Route: 048
  2. DILTIAZEM [Concomitant]
     Active Substance: DILTIAZEM
  3. NEXIUM [Concomitant]
     Active Substance: ESOMEPRAZOLE MAGNESIUM
  4. PRAVASTATIN [Concomitant]
     Active Substance: PRAVASTATIN\PRAVASTATIN SODIUM
     Route: 048
  5. TRAZODONE [Concomitant]
     Active Substance: TRAZODONE HYDROCHLORIDE
     Route: 048
  6. PROVENTIL [Concomitant]
     Active Substance: ALBUTEROL
     Route: 055
  7. BIAXIN [Concomitant]
     Active Substance: CLARITHROMYCIN
     Route: 048
  8. ESOMEPRAZOLE [Concomitant]
     Active Substance: ESOMEPRAZOLE
  9. PLAVIX [Suspect]
     Active Substance: CLOPIDOGREL BISULFATE
     Indication: MYOCARDIAL INFARCTION
     Route: 048
     Dates: start: 20090807, end: 20111225
  10. ASPIRIN. [Concomitant]
     Active Substance: ASPIRIN
     Route: 048
  11. PROZAC [Concomitant]
     Active Substance: FLUOXETINE HYDROCHLORIDE
     Route: 048
  12. FERROUS SULFATE [Concomitant]
     Active Substance: FERROUS SULFATE\FERROUS SULFATE, DRIED
     Route: 048
  13. NITROGLYCERINE [Concomitant]
     Active Substance: NITROGLYCERIN
     Indication: CHEST PAIN
     Route: 060
  14. ZOCOR [Concomitant]
     Active Substance: SIMVASTATIN
  15. ABILIFY [Concomitant]
     Active Substance: ARIPIPRAZOLE
  16. NICOTINE. [Concomitant]
     Active Substance: NICOTINE
     Dosage: FORM: PATCH
  17. LISINOPRIL. [Concomitant]
     Active Substance: LISINOPRIL
     Indication: PANIC DISORDER
     Route: 048
  18. ZOLOFT [Concomitant]
     Active Substance: SERTRALINE HYDROCHLORIDE
     Route: 048
  19. ALPRAZOLAM. [Concomitant]
     Active Substance: ALPRAZOLAM
     Route: 048
  20. SPIRIVA [Concomitant]
     Active Substance: TIOTROPIUM BROMIDE MONOHYDRATE
     Route: 055
  21. BYSTOLIC [Concomitant]
     Active Substance: NEBIVOLOL HYDROCHLORIDE
  22. ATIVAN [Concomitant]
     Active Substance: LORAZEPAM
  23. FOLIC ACID. [Concomitant]
     Active Substance: FOLIC ACID
  24. SIMVASTATIN. [Concomitant]
     Active Substance: SIMVASTATIN
     Indication: PANIC DISORDER
     Route: 048
  25. XANAX [Concomitant]
     Active Substance: ALPRAZOLAM
  26. POTASSIUM CHLORIDE. [Concomitant]
     Active Substance: POTASSIUM CHLORIDE
  27. DIAZEPAM. [Concomitant]
     Active Substance: DIAZEPAM
     Indication: PANIC DISORDER
  28. VOLTAREN [Concomitant]
     Active Substance: DICLOFENAC SODIUM
     Route: 048
  29. PLAVIX [Suspect]
     Active Substance: CLOPIDOGREL BISULFATE
     Indication: ACUTE CORONARY SYNDROME
     Route: 048
     Dates: start: 20090807, end: 20111225
  30. SERTRALINE [Concomitant]
     Active Substance: SERTRALINE HYDROCHLORIDE
  31. TOPROL XL [Concomitant]
     Active Substance: METOPROLOL SUCCINATE
     Route: 048
  32. PROMETHAZINE DM [Concomitant]
     Active Substance: DEXTROMETHORPHAN HYDROBROMIDE\PROMETHAZINE HYDROCHLORIDE
     Dosage: DOSE:1 TEASPOON(S)
     Route: 048

REACTIONS (11)
  - Pain [Not Recovered/Not Resolved]
  - Social problem [Not Recovered/Not Resolved]
  - Physical disability [Not Recovered/Not Resolved]
  - Psychological trauma [Not Recovered/Not Resolved]
  - Multiple injuries [Not Recovered/Not Resolved]
  - Tension [Not Recovered/Not Resolved]
  - Economic problem [Not Recovered/Not Resolved]
  - Deformity [Not Recovered/Not Resolved]
  - Anhedonia [Not Recovered/Not Resolved]
  - Loss of employment [Not Recovered/Not Resolved]
  - Gastrointestinal haemorrhage [Recovered/Resolved]

NARRATIVE: CASE EVENT DATE: 20111225
